FAERS Safety Report 10347436 (Version 2)
Quarter: 2014Q3

REPORT INFORMATION
  Report Type: Spontaneous
  Country: CH (occurrence: CH)
  Receive Date: 20140729
  Receipt Date: 20140804
  Transmission Date: 20150326
  Serious: Yes (Hospitalization, Other)
  Sender: FDA-Public Use
  Company Number: CH-PFIZER INC-2014206497

PATIENT
  Age: 62 Year
  Sex: Male
  Weight: 69 kg

DRUGS (14)
  1. FLUCONAZOLE. [Concomitant]
     Active Substance: FLUCONAZOLE
     Dosage: 400 MG, WEEKLY
     Route: 048
     Dates: start: 20140408, end: 20140512
  2. ASPIRIN ^BAYER^ [Concomitant]
     Active Substance: ASPIRIN
     Dosage: 100 MG, 1X/DAY
     Route: 048
     Dates: end: 20140512
  3. LISINOPRIL. [Suspect]
     Active Substance: LISINOPRIL
     Dosage: 5 MG, 1X/DAY
     Route: 048
     Dates: end: 20140512
  4. CELEBREX [Suspect]
     Active Substance: CELECOXIB
     Indication: PAIN
     Dosage: 100 MG, 2X/DAY
     Route: 048
     Dates: start: 20140507, end: 20140512
  5. CELLCEPT [Concomitant]
     Active Substance: MYCOPHENOLATE MOFETIL\MYCOPHENOLATE MOFETIL HYDROCHLORIDE
     Indication: STEM CELL TRANSPLANT
     Dosage: 1000 MG, 2X/DAY
     Route: 048
     Dates: start: 20140408
  6. VALACICLOVIR [Concomitant]
     Active Substance: VALACYCLOVIR HYDROCHLORIDE
  7. BACTRIM [Suspect]
     Active Substance: SULFAMETHOXAZOLE\TRIMETHOPRIM
     Dosage: 160 MG, 3X/WEEK
     Route: 048
     Dates: start: 201404, end: 20140512
  8. CYCLOSPORIN [Suspect]
     Active Substance: CYCLOSPORINE
     Indication: STEM CELL TRANSPLANT
     Dosage: 100 MG, 2X/DAY
     Route: 048
     Dates: start: 20140408, end: 20140506
  9. CYCLOSPORIN [Suspect]
     Active Substance: CYCLOSPORINE
     Dosage: 125 MG, 2X/DAY
     Route: 048
     Dates: start: 20140507, end: 20140512
  10. PHENOXYMETHYL PENICILLIN [Suspect]
     Active Substance: PENICILLIN V
     Dosage: 1000000 IU, 1X/DAY
     Route: 048
     Dates: start: 20140424, end: 20140512
  11. URSOFALK [Suspect]
     Active Substance: URSODIOL
     Dosage: 250 MG, 3X/DAY
     Route: 048
  12. IBUPROFEN. [Concomitant]
     Active Substance: IBUPROFEN
     Indication: MUSCULOSKELETAL PAIN
     Dosage: UNK
     Dates: end: 20140507
  13. VALCYTE [Suspect]
     Active Substance: VALGANCICLOVIR HYDROCHLORIDE
     Indication: CYTOMEGALOVIRUS TEST POSITIVE
     Dosage: 900 MG, 2X/DAY
     Route: 048
     Dates: start: 20140506, end: 20140512
  14. NEXIUM [Concomitant]
     Active Substance: ESOMEPRAZOLE MAGNESIUM
     Dosage: 40 MG, 1X/DAY
     Route: 048

REACTIONS (7)
  - Aspartate aminotransferase increased [Unknown]
  - Graft versus host disease [Unknown]
  - Alanine aminotransferase increased [Unknown]
  - Pancreatitis [Recovered/Resolved]
  - Lung infiltration [Unknown]
  - Abdominal pain upper [Unknown]
  - Renal failure acute [Recovered/Resolved]

NARRATIVE: CASE EVENT DATE: 20140509
